FAERS Safety Report 4683191-7 (Version None)
Quarter: 2005Q2

REPORT INFORMATION
  Report Type: 
  Country: None (occurrence: None)
  Receive Date: 20050602
  Receipt Date: 20050331
  Transmission Date: 20051028
  Serious: No
  Sender: FDA-Public Use
  Company Number: USA050494618

PATIENT
  Age: 68 Year
  Sex: Female

DRUGS (13)
  1. CYMBALTA [Suspect]
     Indication: ARTHRITIS
     Dosage: 60 MG DAY
     Dates: start: 20050301
  2. LASIX [Concomitant]
  3. POTASSIUM CHLORIDE [Concomitant]
  4. TICLOPIDINE HCL [Concomitant]
  5. LANSOPRAZOLE [Concomitant]
  6. ATENOLOL [Concomitant]
  7. LOSARTAN POTASSIUM [Concomitant]
  8. MONTELUKAST [Concomitant]
  9. GABAPENTIN [Concomitant]
  10. GLIPIZIDE [Concomitant]
  11. LEVOTHYROXINE SODIUM [Concomitant]
  12. BUDESONIDE [Concomitant]
  13. ESCITALOPRAM OXALATE [Concomitant]

REACTIONS (1)
  - EXTRASYSTOLES [None]
